FAERS Safety Report 8985436 (Version 1)
Quarter: 2012Q4

REPORT INFORMATION
  Report Type: 
  Country: US (occurrence: US)
  Receive Date: 20121226
  Receipt Date: 20121226
  Transmission Date: 20130627
  Serious: No
  Sender: FDA-Public Use
  Company Number: US-ABBOTT-12P-163-0973266-00

PATIENT
  Sex: Male
  Weight: 108.96 kg

DRUGS (3)
  1. LUPRON DEPOT 22.5 MG [Suspect]
     Indication: PROSTATE CANCER
     Route: 030
     Dates: start: 201005
  2. LUPRON DEPOT 30 MG [Suspect]
     Indication: PROSTATE CANCER
     Route: 030
     Dates: start: 2008, end: 2009
  3. CELEXA [Concomitant]
     Indication: ANXIETY

REACTIONS (1)
  - Prostatic specific antigen increased [Not Recovered/Not Resolved]
